FAERS Safety Report 23228359 (Version 5)
Quarter: 2024Q2

REPORT INFORMATION
  Report Type: Report from Study
  Country: US (occurrence: US)
  Receive Date: 20231125
  Receipt Date: 20240415
  Transmission Date: 20240716
  Serious: No
  Sender: FDA-Public Use
  Company Number: US-GLAXOSMITHKLINE-US2023AMR160906

PATIENT
  Age: 62 Year
  Sex: Female
  Weight: 54.43 kg

DRUGS (2)
  1. NIRAPARIB [Suspect]
     Active Substance: NIRAPARIB
     Indication: Ovarian cancer
     Dosage: 200 MG, QD, 1DF (EVERY NIGHT AT BEDTIME)
     Route: 048
     Dates: start: 20231108
  2. NIRAPARIB [Suspect]
     Active Substance: NIRAPARIB
     Dosage: 300 MG, QD
     Route: 048
     Dates: start: 202311

REACTIONS (18)
  - Anxiety [Recovering/Resolving]
  - Abdominal pain [Recovered/Resolved]
  - Constipation [Recovering/Resolving]
  - Hypertension [Recovered/Resolved]
  - Blood pressure systolic increased [Recovering/Resolving]
  - Asthenia [Recovering/Resolving]
  - Dyspnoea exertional [Recovering/Resolving]
  - Heart rate increased [Recovering/Resolving]
  - Decreased activity [Recovering/Resolving]
  - Therapy cessation [Unknown]
  - Taste disorder [Not Recovered/Not Resolved]
  - Decreased appetite [Recovering/Resolving]
  - Ill-defined disorder [Recovering/Resolving]
  - Illness [Unknown]
  - Depression [Recovered/Resolved]
  - Fatigue [Recovered/Resolved]
  - Mouth ulceration [Recovered/Resolved]
  - Headache [Recovered/Resolved]

NARRATIVE: CASE EVENT DATE: 20231101
